FAERS Safety Report 13675193 (Version 2)
Quarter: 2017Q3

REPORT INFORMATION
  Report Type: Report from Study
  Country: US (occurrence: US)
  Receive Date: 20170621
  Receipt Date: 20170804
  Transmission Date: 20171127
  Serious: Yes (Hospitalization)
  Sender: FDA-Public Use
  Company Number: US-ACTELION-A-US2017-155487

PATIENT
  Age: 57 Year
  Sex: Female

DRUGS (33)
  1. ARAVA [Concomitant]
     Active Substance: LEFLUNOMIDE
  2. METHOTREXATE SODIUM. [Concomitant]
     Active Substance: METHOTREXATE SODIUM
  3. MAGNESIUM [Concomitant]
     Active Substance: MAGNESIUM
  4. ACETAMINOPHEN AND CODEINE [Concomitant]
     Active Substance: ACETAMINOPHEN\CODEINE PHOSPHATE
  5. BUMETANIDE. [Concomitant]
     Active Substance: BUMETANIDE
  6. FOLIC ACID. [Concomitant]
     Active Substance: FOLIC ACID
  7. TOUJEO [Concomitant]
     Active Substance: INSULIN GLARGINE
  8. DIOVAN [Concomitant]
     Active Substance: VALSARTAN
  9. XARELTO [Concomitant]
     Active Substance: RIVAROXABAN
  10. GLIMEPIRIDE. [Concomitant]
     Active Substance: GLIMEPIRIDE
  11. HYDROCODONE BITARTRATE AND ACETAMINOPHEN [Concomitant]
     Active Substance: ACETAMINOPHEN\HYDROCODONE BITARTRATE
  12. ATORVASTATIN CALCIUM. [Concomitant]
     Active Substance: ATORVASTATIN CALCIUM
  13. PANTOPRAZOLE SODIUM. [Concomitant]
     Active Substance: PANTOPRAZOLE SODIUM
  14. FUROSEMIDE. [Concomitant]
     Active Substance: FUROSEMIDE
  15. REVATIO [Concomitant]
     Active Substance: SILDENAFIL CITRATE
  16. STELARA [Concomitant]
     Active Substance: USTEKINUMAB
  17. IRON [Concomitant]
     Active Substance: IRON
  18. BYDUREON [Concomitant]
     Active Substance: EXENATIDE
  19. JANUVIA [Concomitant]
     Active Substance: SITAGLIPTIN PHOSPHATE
  20. KLOR-CON [Concomitant]
     Active Substance: POTASSIUM CHLORIDE
  21. OXYCODONE [Concomitant]
     Active Substance: OXYCODONE
  22. VERAPAMIL [Concomitant]
     Active Substance: VERAPAMIL HYDROCHLORIDE
  23. TRULICITY [Concomitant]
     Active Substance: DULAGLUTIDE
  24. SPIRONOLACTONE. [Concomitant]
     Active Substance: SPIRONOLACTONE
  25. IRON DEXTRAN [Concomitant]
     Active Substance: IRON DEXTRAN
  26. METOPROLOL TARTRATE. [Concomitant]
     Active Substance: METOPROLOL TARTRATE
  27. SIMVASTATIN. [Concomitant]
     Active Substance: SIMVASTATIN
  28. CLOPIDOGREL [Concomitant]
     Active Substance: CLOPIDOGREL BISULFATE
  29. AMLODIPINE BESYLATE. [Concomitant]
     Active Substance: AMLODIPINE BESYLATE
  30. OPSUMIT [Suspect]
     Active Substance: MACITENTAN
     Indication: PULMONARY ARTERIAL HYPERTENSION
     Dosage: 10 MG, QD
     Route: 048
     Dates: start: 20140614
  31. SYNTHROID [Concomitant]
     Active Substance: LEVOTHYROXINE SODIUM
  32. GABAPENTIN. [Concomitant]
     Active Substance: GABAPENTIN
  33. METFORMIN [Concomitant]
     Active Substance: METFORMIN HYDROCHLORIDE

REACTIONS (9)
  - Sepsis [Unknown]
  - Unevaluable therapy [Unknown]
  - Asthenia [Unknown]
  - Condition aggravated [Unknown]
  - Malabsorption [Unknown]
  - Malaise [Unknown]
  - Anaemia [Not Recovered/Not Resolved]
  - Pulmonary hypertension [Unknown]
  - Depressed mood [Unknown]
